FAERS Safety Report 8032165-7 (Version None)
Quarter: 2012Q1

REPORT INFORMATION
  Report Type: 
  Country: None (occurrence: None)
  Receive Date: 20120109
  Receipt Date: 20111219
  Transmission Date: 20120608
  Serious: Yes (Death, Other)
  Sender: FDA-Public Use
  Company Number: PHHY2011NL110309

PATIENT
  Sex: Male

DRUGS (1)
  1. OCTREOTIDE ACETATE [Suspect]
     Indication: CHYLOTHORAX
     Dosage: 6 UG/KG/H FOR 23 DAYS

REACTIONS (3)
  - PERSISTENT FOETAL CIRCULATION [None]
  - RESPIRATORY DISORDER [None]
  - CARDIO-RESPIRATORY DISTRESS [None]
